FAERS Safety Report 4458947-6 (Version None)
Quarter: 2004Q3

REPORT INFORMATION
  Report Type: 
  Country: None (occurrence: None)
  Receive Date: 20040923
  Receipt Date: 20040923
  Transmission Date: 20050211
  Serious: Yes (Other)
  Sender: FDA-Public Use
  Company Number: None

PATIENT
  Age: 67 Year
  Sex: Female
  Weight: 68.9467 kg

DRUGS (2)
  1. LEVAQUIN [Suspect]
     Indication: BRONCHITIS
     Dosage: 1/DAY 14 DAYS
     Dates: start: 20040524, end: 20040606
  2. LEVAQUIN [Suspect]
     Indication: SINUSITIS
     Dosage: 1/DAY 14 DAYS
     Dates: start: 20040524, end: 20040606

REACTIONS (14)
  - ARTHRALGIA [None]
  - CHEST DISCOMFORT [None]
  - HYPERSENSITIVITY [None]
  - JOINT STIFFNESS [None]
  - LABORATORY TEST ABNORMAL [None]
  - METABOLIC DISORDER [None]
  - MOVEMENT DISORDER [None]
  - MUSCLE INJURY [None]
  - OEDEMA PERIPHERAL [None]
  - PAIN [None]
  - PAIN IN EXTREMITY [None]
  - PALPITATIONS [None]
  - PARAESTHESIA [None]
  - TINNITUS [None]
